FAERS Safety Report 7055818-6 (Version None)
Quarter: 2010Q4

REPORT INFORMATION
  Report Type: 
  Country: None (occurrence: None)
  Receive Date: 20101018
  Receipt Date: 20101014
  Transmission Date: 20110411
  Serious: Yes (Other)
  Sender: FDA-Public Use
  Company Number: 2010100009

PATIENT
  Age: 57 Year
  Sex: Female

DRUGS (7)
  1. ONSOLIS [Suspect]
     Indication: BREAKTHROUGH PAIN
     Dosage: SEE IMAGE
     Route: 002
     Dates: start: 20100120, end: 20100217
  2. ONSOLIS [Suspect]
     Indication: BREAKTHROUGH PAIN
     Dosage: SEE IMAGE
     Route: 002
     Dates: start: 20100218, end: 20100413
  3. ONSOLIS [Suspect]
     Indication: BREAKTHROUGH PAIN
     Dosage: SEE IMAGE
     Route: 002
     Dates: start: 20100414
  4. PERCOCET [Concomitant]
  5. FENTANYL [Concomitant]
  6. VICODIN ES (HYDROCODONE BITARTRATE, ACETAMINOPHEN) [Concomitant]
  7. DURAGESIC-100 [Concomitant]

REACTIONS (4)
  - CAUDA EQUINA SYNDROME [None]
  - INTERVERTEBRAL DISC PROTRUSION [None]
  - NERVE ROOT COMPRESSION [None]
  - URINARY INCONTINENCE [None]
